FAERS Safety Report 4760997-7 (Version None)
Quarter: 2005Q3

REPORT INFORMATION
  Report Type: 
  Country: None (occurrence: None)
  Receive Date: 20050901
  Receipt Date: 20050824
  Transmission Date: 20060218
  Serious: Yes (Other)
  Sender: FDA-Public Use
  Company Number: S05-USA-04099-01

PATIENT
  Age: 57 Year
  Sex: Male
  Weight: 113.3993 kg

DRUGS (6)
  1. LEXAPRO [Suspect]
     Indication: ANXIETY
     Dates: start: 20030101, end: 20030101
  2. LEXAPRO [Suspect]
     Indication: DEPRESSION
     Dates: start: 20030101, end: 20030101
  3. LOTENSIN [Concomitant]
  4. SEROQUEL [Concomitant]
  5. PAXIL [Concomitant]
  6. ENTEX PSE [Concomitant]

REACTIONS (4)
  - CONDITION AGGRAVATED [None]
  - CONFUSIONAL STATE [None]
  - HYPERTENSION [None]
  - MANIA [None]
